FAERS Safety Report 22027419 (Version 1)
Quarter: 2023Q1

REPORT INFORMATION
  Report Type: Spontaneous
  Country: US (occurrence: None)
  Receive Date: 20230220
  Receipt Date: 20230220
  Transmission Date: 20230418
  Serious: Yes (Disabling, Other)
  Sender: FDA-Public Use
  Company Number: None

PATIENT
  Age: 61 Year
  Sex: Female
  Weight: 67.5 kg

DRUGS (1)
  1. DENOSUMAB [Suspect]
     Active Substance: DENOSUMAB
     Indication: Osteoporosis

REACTIONS (5)
  - Back pain [None]
  - Pain in extremity [None]
  - Foot fracture [None]
  - Psoriasis [None]
  - Therapy cessation [None]

NARRATIVE: CASE EVENT DATE: 20211223
